FAERS Safety Report 6057449-3 (Version None)
Quarter: 2009Q1

REPORT INFORMATION
  Report Type: 
  Country: None (occurrence: None)
  Receive Date: 20090126
  Receipt Date: 20090126
  Transmission Date: 20090719
  Serious: No
  Sender: FDA-Public Use
  Company Number: None

PATIENT
  Age: 51 Year
  Sex: Male
  Weight: 72.1219 kg

DRUGS (1)
  1. TRAVATAN Z [Suspect]
     Indication: OCULAR HYPERTENSION
     Dosage: ONE DROP EACH EYE DAILY INTRAOCULAR
     Route: 031
     Dates: start: 20080801, end: 20081218

REACTIONS (4)
  - ANXIETY [None]
  - DEPRESSION [None]
  - HYPERTENSION [None]
  - NERVOUSNESS [None]
